FAERS Safety Report 19725124 (Version 1)
Quarter: 2021Q3

REPORT INFORMATION
  Report Type: Spontaneous
  Country: US (occurrence: US)
  Receive Date: 20210817
  Receipt Date: 20210817
  Transmission Date: 20211014
  Serious: Yes (Disabling, Other)
  Sender: FDA-Public Use
  Company Number: None

PATIENT
  Sex: Female

DRUGS (1)
  1. DEFINITY [Suspect]
     Active Substance: PERFLUTREN

REACTIONS (13)
  - Pain in jaw [None]
  - Hypertension [None]
  - Muscle strain [None]
  - Dyskinesia [None]
  - Lung disorder [None]
  - Rash pruritic [None]
  - Cardiac disorder [None]
  - Headache [None]
  - Back pain [None]
  - Hypoaesthesia [None]
  - Dermatitis allergic [None]
  - Skin lesion [None]
  - Arthralgia [None]

NARRATIVE: CASE EVENT DATE: 20191228
